FAERS Safety Report 5431692-6 (Version None)
Quarter: 2007Q3

REPORT INFORMATION
  Report Type: 
  Country: None (occurrence: None)
  Receive Date: 20070830
  Receipt Date: 20070828
  Transmission Date: 20080115
  Serious: Yes (Life-Threatening, Hospitalization)
  Sender: FDA-Public Use
  Company Number: CA-SANOFI-SYNTHELABO-F01200701072

PATIENT
  Sex: Male

DRUGS (4)
  1. LEVOTHYROXINE SODIUM [Concomitant]
     Dates: start: 20070105
  2. BEVACIZUMAB [Suspect]
     Dosage: Q2W OR Q3W
     Route: 042
     Dates: start: 20060915, end: 20060915
  3. CAPECITABINE [Suspect]
     Dosage: 4300 MG FOR 2 WEEKS, Q3W 4300 MG
     Route: 048
     Dates: start: 20060330, end: 20060413
  4. OXALIPLATIN [Suspect]
     Indication: COLON CANCER
     Dosage: Q2W OR Q3W
     Route: 042
     Dates: start: 20060330, end: 20060330

REACTIONS (1)
  - MYOCARDIAL INFARCTION [None]
